FAERS Safety Report 7369500-9 (Version None)
Quarter: 2011Q1

REPORT INFORMATION
  Report Type: 
  Country: None (occurrence: None)
  Receive Date: 20110323
  Receipt Date: 20110314
  Transmission Date: 20110831
  Serious: Yes (Other)
  Sender: FDA-Public Use
  Company Number: IT-ASTRAZENECA-2011SE14702

PATIENT
  Age: 63 Year
  Sex: Female

DRUGS (1)
  1. LUCEN (ESOMEPRAZOLE) [Suspect]
     Indication: REFLUX OESOPHAGITIS
     Route: 048
     Dates: start: 20101001, end: 20110225

REACTIONS (6)
  - PANCREATITIS [None]
  - BILE DUCT OBSTRUCTION [None]
  - MALAISE [None]
  - TREMOR [None]
  - CHOLESTASIS [None]
  - PANCREATITIS CHRONIC [None]
